FAERS Safety Report 8800874 (Version 8)
Quarter: 2013Q3

REPORT INFORMATION
  Report Type: Report from Study
  Country: MX (occurrence: MX)
  Receive Date: 20120921
  Receipt Date: 20130823
  Transmission Date: 20140515
  Serious: Yes (Death, Hospitalization)
  Sender: FDA-Public Use
  Company Number: MX-ABBOTT-12P-107-0980717-00

PATIENT
  Age: 55 Year
  Sex: Female
  Weight: 59 kg

DRUGS (10)
  1. HUMIRA [Suspect]
     Indication: RHEUMATOID ARTHRITIS
     Route: 058
     Dates: start: 20120327, end: 20120828
  2. METHOTREXATE [Concomitant]
     Indication: RHEUMATOID ARTHRITIS
     Dates: start: 20120327, end: 20120913
  3. METHOTREXATE [Concomitant]
     Dates: start: 20111010, end: 20120326
  4. SULINDAC [Concomitant]
     Indication: RHEUMATOID ARTHRITIS
     Dates: start: 20120327, end: 20120913
  5. PARACETAMOL [Concomitant]
     Indication: RHEUMATOID ARTHRITIS
     Dates: start: 20120327, end: 20120913
  6. PARACETAMOL [Concomitant]
     Dates: start: 20111110, end: 20120326
  7. OMEPRAZOL [Concomitant]
     Indication: GASTROOESOPHAGEAL REFLUX DISEASE
     Dates: start: 20091023
  8. FOLIC ACID [Concomitant]
     Indication: ENZYME INHIBITION
     Dates: start: 20120327
  9. FOLIC ACID [Concomitant]
     Indication: PROPHYLAXIS
  10. SULINDACO [Concomitant]
     Indication: RHEUMATOID ARTHRITIS
     Dates: start: 20111110, end: 20120326

REACTIONS (1)
  - Hepatic cirrhosis [Fatal]
